FAERS Safety Report 12729278 (Version 1)
Quarter: 2016Q3

REPORT INFORMATION
  Report Type: Spontaneous
  Country: US (occurrence: US)
  Receive Date: 20160908
  Receipt Date: 20160908
  Transmission Date: 20161109
  Serious: Yes (Other)
  Sender: FDA-Public Use
  Company Number: None

PATIENT
  Age: 54 Year
  Sex: Female

DRUGS (1)
  1. ENBREL [Suspect]
     Active Substance: ETANERCEPT
     Indication: ANKYLOSING SPONDYLITIS
     Dosage: OTHER STRENGTH:;OTHER DOSE:;OTHER FREQUENCY:WEEKLY;OTHER ROUTE:
     Route: 058
     Dates: start: 20160810, end: 20160908

REACTIONS (4)
  - Eye haemorrhage [None]
  - Musculoskeletal discomfort [None]
  - Liver function test increased [None]
  - Abdominal discomfort [None]

NARRATIVE: CASE EVENT DATE: 20160905
